FAERS Safety Report 12904561 (Version 5)
Quarter: 2017Q1

REPORT INFORMATION
  Report Type: Report from Study
  Country: JP (occurrence: JP)
  Receive Date: 20161102
  Receipt Date: 20170208
  Transmission Date: 20170428
  Serious: Yes (Life-Threatening)
  Sender: FDA-Public Use
  Company Number: JP-PFIZER INC-2016492978

PATIENT
  Age: 72 Year
  Sex: Male
  Weight: 54 kg

DRUGS (9)
  1. DOCETAXEL HOSPIRA [Suspect]
     Active Substance: DOCETAXEL
     Dosage: 75 MG, CYCLIC (SINGLE)
     Route: 041
     Dates: start: 20140827, end: 20140827
  2. CETUXIMAB. [Suspect]
     Active Substance: CETUXIMAB
     Dosage: 390 MG/M2, WEEKLY (1X/DAY)
     Route: 042
     Dates: start: 20140723, end: 20140723
  3. DOCETAXEL HOSPIRA [Suspect]
     Active Substance: DOCETAXEL
     Indication: HYPOPHARYNGEAL CANCER
     Dosage: 75 MG, CYCLIC (SINGLE)
     Route: 041
     Dates: start: 20140723, end: 20140723
  4. CISPLATIN. [Suspect]
     Active Substance: CISPLATIN
     Indication: HYPOPHARYNGEAL CANCER
     Dosage: 60 MG, CYCLIC (SINGLE)
     Route: 041
     Dates: start: 20140723, end: 20140723
  5. CETUXIMAB. [Suspect]
     Active Substance: CETUXIMAB
     Dosage: 390 MG/M2, WEEKLY (1X/DAY)
     Route: 042
     Dates: start: 20140813, end: 20140813
  6. CETUXIMAB. [Suspect]
     Active Substance: CETUXIMAB
     Indication: HYPOPHARYNGEAL CANCER
     Dosage: 390 MG/M2, WEEKLY (1X/DAY)
     Route: 042
     Dates: start: 20140714, end: 20140714
  7. CETUXIMAB. [Suspect]
     Active Substance: CETUXIMAB
     Dosage: 390 MG/M2, WEEKLY (1X/DAY)
     Route: 042
     Dates: start: 20140806, end: 20140806
  8. CISPLATIN. [Suspect]
     Active Substance: CISPLATIN
     Dosage: 60 MG, CYCLIC (SINGLE)
     Route: 041
     Dates: start: 20140827, end: 20140827
  9. CETUXIMAB. [Suspect]
     Active Substance: CETUXIMAB
     Dosage: 390 MG/M2, WEEKLY (1X/DAY)
     Route: 042
     Dates: start: 20140730, end: 20160730

REACTIONS (4)
  - Mucosal inflammation [Recovering/Resolving]
  - Neutropenia [Recovered/Resolved]
  - Neutropenia [Recovered/Resolved]
  - Pyrexia [Recovering/Resolving]

NARRATIVE: CASE EVENT DATE: 20140801
